FAERS Safety Report 4804848-0 (Version None)
Quarter: 2005Q4

REPORT INFORMATION
  Report Type: 
  Country: None (occurrence: None)
  Receive Date: 20051017
  Receipt Date: 20051003
  Transmission Date: 20060501
  Serious: Yes (Other)
  Sender: FDA-Public Use
  Company Number: 2005137539

PATIENT
  Sex: Male

DRUGS (1)
  1. VIAGRA [Suspect]
     Indication: ILL-DEFINED DISORDER

REACTIONS (8)
  - GLAUCOMA [None]
  - HEADACHE [None]
  - MACULAR DEGENERATION [None]
  - MYOPIA [None]
  - NERVE DEGENERATION [None]
  - OPTIC NERVE CUPPING [None]
  - OPTIC NERVE DISORDER [None]
  - RETINAL DISORDER [None]
